FAERS Safety Report 4351328-5 (Version None)
Quarter: 2004Q2

REPORT INFORMATION
  Report Type: 
  Country: None (occurrence: None)
  Receive Date: 20040428
  Receipt Date: 20040409
  Transmission Date: 20050107
  Serious: Yes (Life-Threatening, Hospitalization)
  Sender: FDA-Public Use
  Company Number: USA030638693

PATIENT
  Age: 54 Year
  Sex: Female
  Weight: 70 kg

DRUGS (4)
  1. ZYPREXA [Suspect]
     Indication: MANIA
     Dosage: 2.5 MG/DAY
     Dates: start: 20031124, end: 20031219
  2. PROZAC [Suspect]
     Indication: DEPRESSION
     Dosage: 40 MG DAY
     Dates: start: 20030501
  3. PROZAC [Suspect]
     Indication: POST-TRAUMATIC STRESS DISORDER
     Dosage: 40 MG DAY
     Dates: start: 20030501
  4. VICODIN [Concomitant]

REACTIONS (4)
  - AGITATION [None]
  - AMMONIA INCREASED [None]
  - HEPATIC FAILURE [None]
  - LIVER DISORDER [None]
